FAERS Safety Report 20463012 (Version 1)
Quarter: 2022Q1

REPORT INFORMATION
  Report Type: Spontaneous
  Country: US (occurrence: US)
  Receive Date: 20220211
  Receipt Date: 20220211
  Transmission Date: 20220423
  Serious: No
  Sender: FDA-Public Use
  Company Number: US-009507513-2202USA000639

PATIENT

DRUGS (9)
  1. NOXAFIL [Suspect]
     Active Substance: POSACONAZOLE
     Indication: Antifungal prophylaxis
     Dosage: 100 MILLIGRAM, QD
     Route: 048
     Dates: start: 20191009, end: 20220201
  2. ENVARSUS XR [Concomitant]
     Active Substance: TACROLIMUS
  3. VITAMINS NOS [Concomitant]
     Active Substance: VITAMINS
  4. LASIX [Concomitant]
     Active Substance: FUROSEMIDE
  5. AZITHROMYCIN [Concomitant]
     Active Substance: AZITHROMYCIN
  6. PANTOPRAZOLE [Concomitant]
     Active Substance: PANTOPRAZOLE
  7. PREDNISONE [Concomitant]
     Active Substance: PREDNISONE
  8. VALCYTE [Concomitant]
     Active Substance: VALGANCICLOVIR HYDROCHLORIDE
  9. SIROLIMUS [Concomitant]
     Active Substance: SIROLIMUS

REACTIONS (2)
  - Product dose omission issue [Unknown]
  - No adverse event [Unknown]
